FAERS Safety Report 16535266 (Version 1)
Quarter: 2019Q3

REPORT INFORMATION
  Report Type: Spontaneous
  Country: JP (occurrence: JP)
  Receive Date: 20190705
  Receipt Date: 20190705
  Transmission Date: 20191004
  Serious: Yes (Other)
  Sender: FDA-Public Use
  Company Number: JP-AMERIGEN PHARMACEUTICALS, INC-2019AMG000029

PATIENT

DRUGS (1)
  1. BEXAROTENE. [Suspect]
     Active Substance: BEXAROTENE
     Indication: CUTANEOUS T-CELL LYMPHOMA
     Dosage: 300 MG, OD
     Route: 048

REACTIONS (2)
  - Disease progression [Unknown]
  - Small intestinal obstruction [Unknown]
